FAERS Safety Report 11024191 (Version 2)
Quarter: 2015Q2

REPORT INFORMATION
  Report Type: Spontaneous
  Country: JP (occurrence: JP)
  Receive Date: 20150413
  Receipt Date: 20150414
  Transmission Date: 20150821
  Serious: Yes (Hospitalization, Other)
  Sender: FDA-Public Use
  Company Number: PHHY2014JP169223

PATIENT
  Age: 77 Year
  Sex: Male

DRUGS (5)
  1. NEUPRO [Concomitant]
     Active Substance: ROTIGOTINE
     Indication: PRODUCT USED FOR UNKNOWN INDICATION
     Route: 062
  2. EXELON PATCH [Suspect]
     Active Substance: RIVASTIGMINE
     Indication: DEMENTIA
     Dosage: 9.5 MG/ 24H (18 MG RIVASTIGMINE BASE/ PATCH 10 CM2) DAILY
     Route: 062
  3. EXELON PATCH [Suspect]
     Active Substance: RIVASTIGMINE
     Indication: PARKINSON^S DISEASE
     Dosage: 6.9 MG/24 (13.5 MG RIVASTIGMINE BASE/ PATCH 7.5 CM2) DAILY
     Route: 062
     Dates: end: 20140402
  4. EXELON PATCH [Suspect]
     Active Substance: RIVASTIGMINE
     Indication: DEMENTIA ALZHEIMER^S TYPE
     Dosage: 1.9 MG/ 24H (4.5 MG RIVASTIGMINE BASE/ PATCH 2.5 CM2) DAILY
     Route: 062
     Dates: start: 20140108
  5. EXELON PATCH [Suspect]
     Active Substance: RIVASTIGMINE
     Dosage: 9.5 MG/ 24H (18 MG RIVASTIGMINE BASE/ PATCH 10 CM2) DAILY
     Route: 062
     Dates: start: 20140403, end: 20141225

REACTIONS (3)
  - Dysphagia [Not Recovered/Not Resolved]
  - Lumbar vertebral fracture [Unknown]
  - Fall [Unknown]

NARRATIVE: CASE EVENT DATE: 201411
